FAERS Safety Report 12894546 (Version 1)
Quarter: 2016Q4

REPORT INFORMATION
  Report Type: Spontaneous
  Country: JP (occurrence: JP)
  Receive Date: 20161028
  Receipt Date: 20161028
  Transmission Date: 20170207
  Serious: Yes (Life-Threatening, Hospitalization, Other)
  Sender: FDA-Public Use
  Company Number: JP-BRISTOL-MYERS SQUIBB COMPANY-BMS-2016-088233

PATIENT
  Age: 78 Year
  Sex: Male

DRUGS (1)
  1. ELIQUIS [Suspect]
     Active Substance: APIXABAN
     Indication: CEREBROVASCULAR ACCIDENT PROPHYLAXIS
     Dosage: 10 MG, DAILY
     Route: 048
     Dates: start: 20160803

REACTIONS (6)
  - Portal hypertension [Unknown]
  - Craniotomy [Unknown]
  - Subdural haematoma [Recovered/Resolved]
  - Hypersplenism [Unknown]
  - Pancytopenia [Unknown]
  - Left ventricular failure [Unknown]

NARRATIVE: CASE EVENT DATE: 201610
